FAERS Safety Report 7803307 (Version 3)
Quarter: 2013Q4

REPORT INFORMATION
  Report Type: Spontaneous
  Country: US (occurrence: US)
  Receive Date: 20110208
  Receipt Date: 20131217
  Transmission Date: 20140711
  Serious: Yes (Hospitalization, Other)
  Sender: FDA-Public Use
  Company Number: US-BAYER-2011-011697

PATIENT
  Age: 28 Year
  Sex: Female
  Weight: 77.1 kg

DRUGS (9)
  1. YAZ [Suspect]
     Indication: PRODUCT USED FOR UNKNOWN INDICATION
  2. YASMIN [Suspect]
     Indication: PRODUCT USED FOR UNKNOWN INDICATION
  3. PROCTOZONE H [Concomitant]
  4. HYDROCODONE W/ACETAMINOPHEN [Concomitant]
     Indication: PAIN
     Dosage: 5 MG, PRN 1 EVERY 4-6 HOURS
     Route: 048
  5. HYDROCODONE W/ACETAMINOPHEN [Concomitant]
     Indication: PAIN
     Dosage: 500 MG, PRN 1 EVERY 4-6 HOURS
     Route: 048
  6. ACETAMINOPHEN W/OXYCODONE [Concomitant]
     Indication: PAIN
     Dosage: 5 MG, PRN 1 EVERY 4 HOURS
  7. ACETAMINOPHEN W/OXYCODONE [Concomitant]
     Indication: PAIN
     Dosage: 325 MG, PRN 1 EVERY 4 HOURS
  8. CYCLOBENZAPRINE [Concomitant]
     Indication: MUSCLE SPASMS
     Dosage: 10 MG, PRN 1 EVERY NIGHT AT BEDTIME
     Route: 048
  9. URSODIOL [Concomitant]
     Dosage: 300 MG, QD 1 THREE TIMES
     Route: 048

REACTIONS (3)
  - Gallbladder disorder [None]
  - Emotional distress [None]
  - Cholelithiasis [None]
